FAERS Safety Report 11915371 (Version 2)
Quarter: 2016Q1

REPORT INFORMATION
  Report Type: Spontaneous
  Country: AU (occurrence: AU)
  Receive Date: 20160114
  Receipt Date: 20160223
  Transmission Date: 20160526
  Serious: Yes (Hospitalization, Other)
  Sender: FDA-Public Use
  Company Number: AU-BEH-2016057711

PATIENT
  Age: 44 Year
  Sex: Female
  Weight: 92 kg

DRUGS (3)
  1. PRIVIGEN [Suspect]
     Active Substance: HUMAN IMMUNOGLOBULIN G
     Dosage: 6.58ML/MIN
     Route: 042
     Dates: start: 20160106, end: 20160106
  2. PRIVIGEN [Suspect]
     Active Substance: HUMAN IMMUNOGLOBULIN G
     Dosage: CONCENTRATION 10%. 6.58ML/MIN
     Route: 042
     Dates: start: 20160106, end: 20160106
  3. PRIVIGEN [Suspect]
     Active Substance: HUMAN IMMUNOGLOBULIN G
     Indication: RHEUMATOID ARTHRITIS
     Dosage: 6.58ML/MIN
     Route: 042
     Dates: start: 20160106, end: 20160106

REACTIONS (20)
  - Restlessness [Recovered/Resolved]
  - Mydriasis [Recovered/Resolved]
  - Headache [Unknown]
  - Influenza like illness [Recovered/Resolved]
  - Drug hypersensitivity [Recovered/Resolved]
  - Eye swelling [Recovered/Resolved]
  - Hypertension [Recovered/Resolved]
  - Malaise [Recovered/Resolved]
  - Gait disturbance [Recovered/Resolved]
  - Pain in extremity [Recovered/Resolved]
  - Extrasystoles [Unknown]
  - Aphasia [Recovered/Resolved]
  - Pharyngeal oedema [Recovered/Resolved]
  - Swelling face [Recovered/Resolved]
  - Oropharyngeal pain [Recovered/Resolved]
  - Hypoaesthesia [Recovered/Resolved]
  - Somnolence [Unknown]
  - Tachycardia [Recovered/Resolved]
  - Wheezing [Unknown]
  - Dysarthria [Recovered/Resolved]

NARRATIVE: CASE EVENT DATE: 20160106
